FAERS Safety Report 12631214 (Version 2)
Quarter: 2016Q3

REPORT INFORMATION
  Report Type: Spontaneous
  Country: US (occurrence: US)
  Receive Date: 20160808
  Receipt Date: 20160808
  Transmission Date: 20161109
  Serious: No
  Sender: FDA-Public Use
  Company Number: US-BEH-2015052848

PATIENT
  Age: 55 Year
  Sex: Female
  Weight: 77.1 kg

DRUGS (21)
  1. ACETAMINOPHEN. [Concomitant]
     Active Substance: ACETAMINOPHEN
  2. DIPHENHYDRAMINE. [Concomitant]
     Active Substance: DIPHENHYDRAMINE
  3. MEDROL [Concomitant]
     Active Substance: METHYLPREDNISOLONE
  4. BROMELAINS [Concomitant]
     Active Substance: BROMELAINS
  5. PROTEIN SUPPLEMENTS [Concomitant]
     Active Substance: PROTEIN
  6. ZYRTEC [Concomitant]
     Active Substance: CETIRIZINE HYDROCHLORIDE
  7. HIZENTRA [Suspect]
     Active Substance: HUMAN IMMUNOGLOBULIN G
     Indication: IMMUNODEFICIENCY COMMON VARIABLE
     Route: 058
  8. DEMEROL [Concomitant]
     Active Substance: MEPERIDINE HYDROCHLORIDE
  9. FLONASE [Concomitant]
     Active Substance: FLUTICASONE PROPIONATE
  10. LIDOCAINE/PRILOCAINE [Concomitant]
     Active Substance: LIDOCAINE\PRILOCAINE
  11. LIDOCAINE. [Concomitant]
     Active Substance: LIDOCAINE
  12. EPIPEN [Concomitant]
     Active Substance: EPINEPHRINE
  13. AMINO ACIDS [Concomitant]
     Active Substance: AMINO ACIDS
  14. LMX [Concomitant]
     Active Substance: LIDOCAINE
  15. GLUTAMINE [Concomitant]
     Active Substance: GLUTAMINE
  16. MULTIVITAMIN [Concomitant]
     Active Substance: VITAMINS
  17. METROCREAM [Concomitant]
     Active Substance: METRONIDAZOLE
  18. NYSTATIN. [Concomitant]
     Active Substance: NYSTATIN
  19. PHENERGAN [Concomitant]
     Active Substance: PROMETHAZINE HYDROCHLORIDE
  20. CHROMIUM PICOLINATE [Concomitant]
     Active Substance: CHROMIUM PICOLINATE
  21. FISH OIL OMEGA 3 [Concomitant]

REACTIONS (1)
  - Rash [Unknown]

NARRATIVE: CASE EVENT DATE: 201505
